FAERS Safety Report 4855964-9 (Version None)
Quarter: 2005Q4

REPORT INFORMATION
  Report Type: 
  Country: None (occurrence: None)
  Receive Date: 20051214
  Receipt Date: 20051201
  Transmission Date: 20060501
  Serious: Yes (Hospitalization, Other)
  Sender: FDA-Public Use
  Company Number: 2005154352

PATIENT
  Sex: Female
  Weight: 58.9676 kg

DRUGS (9)
  1. BEXTRA [Suspect]
     Indication: OSTEOARTHRITIS
     Dosage: 20 MG (20 MG, 1 IN 1 D), ORAL
     Route: 048
     Dates: start: 20021001
  2. LIPITOR [Suspect]
     Indication: HYPERCHOLESTEROLAEMIA
     Dosage: 10 MG (10 MG, 1 IN 1 D), ORAL
     Route: 048
  3. ATENOLOL [Suspect]
     Indication: CARDIAC DISORDER
     Dates: start: 20050401
  4. LEVOTHROID [Concomitant]
  5. AMBIEN [Concomitant]
  6. LISINOPRIL [Concomitant]
  7. ASPIRIN [Concomitant]
  8. MICARDIS [Concomitant]
  9. MOBIC [Concomitant]

REACTIONS (4)
  - CORONARY ARTERY DISEASE [None]
  - CORONARY OSTIAL STENOSIS [None]
  - HYPERCHOLESTEROLAEMIA [None]
  - SHOULDER PAIN [None]
